FAERS Safety Report 23592361 (Version 1)
Quarter: 2024Q1

REPORT INFORMATION
  Report Type: Spontaneous
  Country: US (occurrence: US)
  Receive Date: 20240304
  Receipt Date: 20240304
  Transmission Date: 20240410
  Serious: No
  Sender: FDA-Public Use
  Company Number: US-E2BLSMVVAL-SPO/USA/24/0003165

PATIENT
  Age: 22 Month
  Sex: Male
  Weight: 13.02 kg

DRUGS (3)
  1. SAPROPTERIN [Suspect]
     Active Substance: SAPROPTERIN
     Indication: Hyperphenylalaninaemia
     Route: 048
  2. HYDROCORTISONE [Concomitant]
     Active Substance: HYDROCORTISONE
     Indication: Product used for unknown indication
  3. MUPIROCIN [Concomitant]
     Active Substance: MUPIROCIN
     Indication: Product used for unknown indication

REACTIONS (3)
  - Influenza [Unknown]
  - Decreased appetite [Unknown]
  - Pyrexia [Unknown]
